FAERS Safety Report 16896228 (Version 1)
Quarter: 2019Q4

REPORT INFORMATION
  Report Type: Spontaneous
  Country: US (occurrence: US)
  Receive Date: 20191008
  Receipt Date: 20191008
  Transmission Date: 20200122
  Serious: No
  Sender: FDA-Public Use
  Company Number: US-PFIZER INC-2019430384

PATIENT
  Age: 47 Year
  Sex: Male
  Weight: 90.72 kg

DRUGS (3)
  1. METAXALONE. [Suspect]
     Active Substance: METAXALONE
     Indication: PAIN
  2. METAXALONE. [Suspect]
     Active Substance: METAXALONE
     Indication: NERVE INJURY
     Dosage: 800 MG, 2X/DAY
     Route: 048
  3. NEURONTIN [Concomitant]
     Active Substance: GABAPENTIN

REACTIONS (2)
  - Intentional product misuse [Unknown]
  - Depression [Unknown]
